APPROVED DRUG PRODUCT: DIFLUNISAL
Active Ingredient: DIFLUNISAL
Strength: 500MG
Dosage Form/Route: TABLET;ORAL
Application: A202845 | Product #001 | TE Code: AB
Applicant: HERITAGE PHARMA LABS INC
Approved: Mar 8, 2012 | RLD: No | RS: No | Type: RX